FAERS Safety Report 7953428-7 (Version None)
Quarter: 2011Q4

REPORT INFORMATION
  Report Type: 
  Country: None (occurrence: None)
  Receive Date: 20111202
  Receipt Date: 20111122
  Transmission Date: 20120403
  Serious: Yes (Other)
  Sender: FDA-Public Use
  Company Number: BR-BAYER-2011-088314

PATIENT
  Age: 31 Year
  Sex: Female

DRUGS (12)
  1. BETASERON [Suspect]
     Dosage: 1 ML, QOD
     Route: 058
     Dates: start: 20101122, end: 20110704
  2. BETASERON [Suspect]
     Dosage: 0.500 ML, QOD
     Route: 058
     Dates: start: 20111008, end: 20111017
  3. FLUOXETINE [Concomitant]
     Indication: DEPRESSION
     Dosage: 1 DF, QD
     Route: 048
     Dates: start: 20080101
  4. BETASERON [Suspect]
     Dosage: 1 ML, QOD
     Route: 058
     Dates: start: 20111029, end: 20111105
  5. BETASERON [Suspect]
  6. BETASERON [Suspect]
     Dosage: 0.25 ML, QOD
     Route: 058
     Dates: start: 20110926, end: 20111005
  7. BETASERON [Suspect]
     Dosage: 0.75 ML, QOD
     Route: 058
     Dates: start: 20111021, end: 20111027
  8. BETASERON [Suspect]
     Indication: RELAPSING-REMITTING MULTIPLE SCLEROSIS
     Dosage: 1 ML, QOD
     Route: 058
     Dates: start: 20070101, end: 20110701
  9. BETASERON [Suspect]
     Dosage: 1 ML, QOD
     Route: 058
     Dates: start: 20070101, end: 20101022
  10. DROSPIRENONE AND ETHINYL ESTRADIOL [Concomitant]
     Dosage: 1 DF, QD
     Route: 048
     Dates: start: 20110501
  11. DROSPIRENONE AND ETHINYL ESTRADIOL [Concomitant]
     Indication: CONTRACEPTION
     Dosage: 1 DF, QD
     Route: 048
     Dates: start: 20110501
  12. BETASERON [Suspect]
     Dosage: 0.25 ML, QOD
     Route: 058
     Dates: start: 20110823, end: 20110831

REACTIONS (12)
  - PYREXIA [None]
  - HEADACHE [None]
  - URINARY TRACT INFECTION [None]
  - DELIRIUM FEBRILE [None]
  - VOMITING [None]
  - WEIGHT DECREASED [None]
  - COLITIS [None]
  - HAEMATOCHEZIA [None]
  - BACK PAIN [None]
  - MYALGIA [None]
  - INJECTION SITE DISCOLOURATION [None]
  - MUSCULOSKELETAL PAIN [None]
